FAERS Safety Report 17769851 (Version 1)
Quarter: 2020Q2

REPORT INFORMATION
  Report Type: Spontaneous
  Country: US (occurrence: US)
  Receive Date: 20200512
  Receipt Date: 20200512
  Transmission Date: 20200714
  Serious: No
  Sender: FDA-Public Use
  Company Number: US-ALLERGAN-2014593US

PATIENT

DRUGS (1)
  1. TAYTULLA [Suspect]
     Active Substance: ETHINYL ESTRADIOL\NORETHINDRONE ACETATE
     Indication: PRODUCT USED FOR UNKNOWN INDICATION
     Dosage: 1 DF, QPM

REACTIONS (5)
  - Nausea [Unknown]
  - Medication error [Unknown]
  - Metrorrhagia [Unknown]
  - Adverse event [Unknown]
  - Product odour abnormal [Unknown]
